FAERS Safety Report 14485741 (Version 2)
Quarter: 2018Q1

REPORT INFORMATION
  Report Type: Spontaneous
  Country: US (occurrence: US)
  Receive Date: 20180205
  Receipt Date: 20180221
  Transmission Date: 20180509
  Serious: Yes (Hospitalization, Other)
  Sender: FDA-Public Use
  Company Number: US-DSJP-DSU-2017-139596

PATIENT

DRUGS (1)
  1. BENICAR [Suspect]
     Active Substance: OLMESARTAN MEDOXOMIL
     Indication: PRODUCT USED FOR UNKNOWN INDICATION
     Dosage: 40 MG, QD
     Route: 048
     Dates: start: 20100416, end: 20171024

REACTIONS (11)
  - Irritable bowel syndrome [Unknown]
  - Gastritis erosive [Unknown]
  - Hiatus hernia [Unknown]
  - Haemorrhoids [Not Recovered/Not Resolved]
  - Sprue-like enteropathy [Recovered/Resolved]
  - Gastrooesophageal reflux disease [Unknown]
  - Chronic kidney disease [Unknown]
  - Gastrointestinal haemorrhage [Unknown]
  - Anaemia [Recovered/Resolved]
  - Diverticulum [Unknown]
  - Large intestine polyp [Not Recovered/Not Resolved]

NARRATIVE: CASE EVENT DATE: 20150923
